FAERS Safety Report 6298441-3 (Version None)
Quarter: 2009Q3

REPORT INFORMATION
  Report Type: 
  Country: None (occurrence: None)
  Receive Date: 20090805
  Receipt Date: 20090721
  Transmission Date: 20100115
  Serious: Yes (Hospitalization, Other)
  Sender: FDA-Public Use
  Company Number: US-TYCO HEALTHCARE/MALLINCKRODT-T200901454

PATIENT
  Weight: 77.098 kg

DRUGS (22)
  1. OPTIMARK [Suspect]
     Indication: ANGIOGRAM
     Dosage: UNK
     Dates: start: 20050912, end: 20050912
  2. OMNISCAN [Suspect]
     Indication: NUCLEAR MAGNETIC RESONANCE IMAGING
     Dosage: UNK
     Dates: start: 20050425, end: 20050425
  3. OMNISCAN [Suspect]
     Indication: ANGIOGRAM
  4. TYLENOL (CAPLET) [Concomitant]
     Dosage: 1000 MG, EVERY 6 HRS PRN
  5. ZOFRAN [Concomitant]
     Dosage: EVERY 6 HRS PRN
     Route: 042
  6. DARVOCET A500 [Concomitant]
     Dosage: 1 TABLET EVERY 4 HRS PRN
  7. TUMS                               /00108001/ [Concomitant]
     Dosage: 500 MG, 1 TABLET 30 MINUTES BEFORE MEALS
     Route: 048
  8. NORVASC [Concomitant]
     Dosage: 5 MG, QD
  9. NEPHROCAPS [Concomitant]
     Dosage: ONE CAPSULE DAILY
  10. NEURONTIN [Concomitant]
     Dosage: 300 MG, 1 TABLET
  11. ROCALTROL [Concomitant]
     Dosage: 0.25 UG, QD
  12. FLOMAX [Concomitant]
     Dosage: 0.4 MG, AT BEDTIME
  13. LEVOXYL [Concomitant]
     Dosage: 75 UG, 30 MINUTES BEFORE BREAKFAST
  14. COZAAR [Concomitant]
     Dosage: 100 MG, QD
  15. ZYLOPRIM [Concomitant]
     Dosage: 100 MG, QD
  16. NOVOLOG [Concomitant]
     Dosage: SLIDING SCALE
  17. PREVACID [Concomitant]
     Dosage: 30 MG, BID
  18. CARDIZEM [Concomitant]
     Dosage: 120 MG, QD
  19. HEPARIN [Concomitant]
     Dosage: 1500 U (BOLUS) DURING DIALYSIS
     Route: 042
  20. HEPARIN [Concomitant]
     Dosage: 1500 U (MAINTENANCE) DURING DIALYSIS
     Route: 042
  21. EPOGEN [Concomitant]
     Dosage: 9900 IU, DIALYSIS DAYS
  22. ZEMPLAR [Concomitant]
     Dosage: 3 UG, ON DIALYSIS DAYS

REACTIONS (25)
  - ARTERIOSCLEROSIS CORONARY ARTERY [None]
  - ARTHROPATHY [None]
  - ATELECTASIS [None]
  - CALCULUS URETERIC [None]
  - CATHETER RELATED INFECTION [None]
  - CHOLELITHIASIS [None]
  - CONJUNCTIVITIS [None]
  - DIVERTICULUM INTESTINAL [None]
  - DRUG TOXICITY [None]
  - EXOSTOSIS [None]
  - FLUID OVERLOAD [None]
  - GALLBLADDER DISORDER [None]
  - MUSCULAR WEAKNESS [None]
  - NEPHROGENIC SYSTEMIC FIBROSIS [None]
  - NEUROPATHY PERIPHERAL [None]
  - OFF LABEL USE [None]
  - OSTEOARTHRITIS [None]
  - PLEURAL EFFUSION [None]
  - PNEUMONIA [None]
  - PROSTATITIS [None]
  - PULMONARY VASCULAR DISORDER [None]
  - RENAL ATROPHY [None]
  - THROMBOSIS [None]
  - URINARY TRACT INFECTION [None]
  - VASCULAR CALCIFICATION [None]
